FAERS Safety Report 8164091-7 (Version None)
Quarter: 2012Q1

REPORT INFORMATION
  Report Type: 
  Country: None (occurrence: None)
  Receive Date: 20120224
  Receipt Date: 20120217
  Transmission Date: 20120608
  Serious: Yes (Hospitalization)
  Sender: FDA-Public Use
  Company Number: US-UCBSA-049746

PATIENT
  Age: 60 Year
  Sex: Female
  Weight: 90.7 kg

DRUGS (6)
  1. ATIVAN [Concomitant]
     Dosage: 0.5 MG EVERY 6 HOURS AS NEEDED
     Route: 048
  2. VIMPAT [Suspect]
     Dosage: STRENGTH: 200 MG TABLETS
  3. BONIVA [Concomitant]
     Route: 048
  4. MULTI-VITAMINS [Concomitant]
     Dosage: 2 TABLETS  EVERY DAY
     Route: 048
  5. TRILEPTAL [Concomitant]
     Route: 048
  6. FLUOXETINE [Concomitant]
     Route: 048

REACTIONS (1)
  - RESPIRATORY TRACT INFECTION VIRAL [None]
